FAERS Safety Report 5156240-X (Version None)
Quarter: 2006Q4

REPORT INFORMATION
  Report Type: 
  Country: None (occurrence: None)
  Receive Date: 20061122
  Receipt Date: 20061115
  Transmission Date: 20070319
  Serious: Yes (Hospitalization)
  Sender: FDA-Public Use
  Company Number: US-ABBOTT-06P-163-0350785-00

PATIENT
  Sex: Female

DRUGS (16)
  1. HUMIRA [Suspect]
     Indication: RHEUMATOID ARTHRITIS
     Route: 058
     Dates: start: 20040101, end: 20061104
  2. METHOTREXATE [Concomitant]
     Indication: RHEUMATOID ARTHRITIS
     Dosage: 8 TAB
     Route: 048
  3. FUROSEMIDE [Concomitant]
     Indication: DRUG USE FOR UNKNOWN INDICATION
     Route: 048
  4. LACTINEX [Concomitant]
     Indication: MEDICAL DIET
     Route: 048
  5. FOLIC ACID [Concomitant]
     Indication: MEDICAL DIET
     Route: 048
  6. METOPROLOL SUCCINATE [Concomitant]
     Indication: HYPERTENSION
     Route: 048
  7. CYMBALTA [Concomitant]
     Indication: DRUG USE FOR UNKNOWN INDICATION
     Route: 048
  8. ASASANTIN [Concomitant]
     Indication: DRUG USE FOR UNKNOWN INDICATION
     Dosage: 25/200MG
     Route: 048
  9. ALPRAZOLAM [Concomitant]
     Indication: DRUG USE FOR UNKNOWN INDICATION
     Route: 048
  10. POTASSIUM ACETATE [Concomitant]
     Indication: MEDICAL DIET
     Route: 048
  11. ATORVASTATIN CALCIUM [Concomitant]
     Indication: DRUG USE FOR UNKNOWN INDICATION
     Route: 048
  12. DIOVAN [Concomitant]
     Indication: HYPERTENSION
     Route: 048
  13. METHYLCELLULOSE [Concomitant]
     Indication: DRUG USE FOR UNKNOWN INDICATION
     Route: 048
  14. MAGNESIUM [Concomitant]
     Indication: MEDICAL DIET
     Route: 048
  15. METFORMIN [Concomitant]
     Indication: DIABETES MELLITUS
     Route: 048
  16. RABEPRAZOLE SODIUM [Concomitant]
     Indication: GASTROOESOPHAGEAL REFLUX DISEASE
     Route: 048

REACTIONS (4)
  - ABDOMINAL DISTENSION [None]
  - DEHYDRATION [None]
  - GASTROENTERITIS [None]
  - HYPOKALAEMIA [None]
